FAERS Safety Report 6823808-1 (Version None)
Quarter: 2010Q3

REPORT INFORMATION
  Report Type: 
  Country: None (occurrence: None)
  Receive Date: 20100708
  Receipt Date: 20060908
  Transmission Date: 20110219
  Serious: No
  Sender: FDA-Public Use
  Company Number: US-PFIZER INC-2006110076

PATIENT
  Sex: Female
  Weight: 46.27 kg

DRUGS (10)
  1. CHANTIX [Suspect]
     Indication: EX-TOBACCO USER
     Dates: start: 20060831
  2. NAPROXEN [Concomitant]
  3. SPIRIVA [Concomitant]
  4. FIORINAL [Concomitant]
  5. BUSPAR [Concomitant]
  6. VITAMIN E [Concomitant]
  7. VITAMIN B [Concomitant]
  8. VITAMIN C [Concomitant]
  9. VITAMIN D [Concomitant]
  10. CORTICOSTEROIDS [Concomitant]
     Route: 030
     Dates: start: 20060827

REACTIONS (1)
  - NAUSEA [None]
